FAERS Safety Report 6340682-0 (Version None)
Quarter: 2009Q3

REPORT INFORMATION
  Report Type: 
  Country: None (occurrence: None)
  Receive Date: 20090904
  Receipt Date: 20090826
  Transmission Date: 20100115
  Serious: Yes (Other)
  Sender: FDA-Public Use
  Company Number: GB-ASTRAZENECA-2009SE09699

PATIENT
  Age: 40 Year
  Sex: Male

DRUGS (10)
  1. QUETIAPINE [Suspect]
     Route: 048
  2. ABILIFY [Suspect]
     Indication: METABOLIC SYNDROME
     Route: 048
     Dates: start: 20081001
  3. ABILIFY [Suspect]
     Indication: SCHIZOAFFECTIVE DISORDER
     Route: 048
     Dates: start: 20081001
  4. DULOXETINE HYDROCHLORIDE [Suspect]
  5. MIRTAZAPINE [Suspect]
  6. RISPERIDONE [Suspect]
  7. VALPROATE SODIUM [Suspect]
  8. DRUG USED IN DIABETES [Concomitant]
     Indication: TYPE 2 DIABETES MELLITUS
     Route: 048
  9. EFFEXOR [Concomitant]
     Indication: DEPRESSION
     Route: 048
  10. LITHIUM [Concomitant]

REACTIONS (3)
  - HYPOTHYROIDISM [None]
  - LIVER FUNCTION TEST ABNORMAL [None]
  - METABOLIC SYNDROME [None]
